FAERS Safety Report 13529704 (Version 1)
Quarter: 2017Q2

REPORT INFORMATION
  Report Type: Spontaneous
  Country: US (occurrence: US)
  Receive Date: 20170509
  Receipt Date: 20170509
  Transmission Date: 20170830
  Serious: No
  Sender: FDA-Public Use
  Company Number: US-ROCHE-GNE303476

PATIENT
  Age: 57 Year
  Sex: Female

DRUGS (1)
  1. XOLAIR [Suspect]
     Active Substance: OMALIZUMAB
     Indication: PRODUCT USED FOR UNKNOWN INDICATION
     Dosage: UNK
     Route: 065
     Dates: end: 20100330

REACTIONS (6)
  - Dizziness [None]
  - Weight increased [None]
  - Dyspepsia [None]
  - Fatigue [None]
  - Wheezing [Unknown]
  - Influenza like illness [None]

NARRATIVE: CASE EVENT DATE: 20091120
